FAERS Safety Report 4890500-2 (Version None)
Quarter: 2006Q1

REPORT INFORMATION
  Report Type: 
  Country: None (occurrence: None)
  Receive Date: 20060123
  Receipt Date: 20060123
  Transmission Date: 20060701
  Serious: Yes (Hospitalization, Other)
  Sender: FDA-Public Use
  Company Number: None

PATIENT
  Sex: Male
  Weight: 124 kg

DRUGS (4)
  1. RITUXIMAB [Suspect]
     Indication: CHRONIC LYMPHOCYTIC LEUKAEMIA
     Dosage: SEE IMAGE
     Route: 042
     Dates: start: 20051227, end: 20051227
  2. RITUXIMAB [Suspect]
     Dosage: SEE IMAGE
     Route: 042
     Dates: start: 20051227
  3. RITUXIMAB [Suspect]
     Dosage: SEE IMAGE
     Route: 042
     Dates: start: 20051227
  4. FLUDARABINE [Suspect]
     Dosage: SEE IMAGE
     Route: 042
     Dates: start: 20051227, end: 20051231

REACTIONS (4)
  - DYSPNOEA [None]
  - PULMONARY OEDEMA [None]
  - PYREXIA [None]
  - VIRAL INFECTION [None]
